FAERS Safety Report 13141875 (Version 1)
Quarter: 2017Q1

REPORT INFORMATION
  Report Type: Spontaneous
  Country: DE (occurrence: DE)
  Receive Date: 20170124
  Receipt Date: 20170124
  Transmission Date: 20170428
  Serious: Yes (Hospitalization, Other)
  Sender: FDA-Public Use
  Company Number: DE-PFIZER INC-2016332289

PATIENT
  Age: 86 Year
  Sex: Male
  Weight: 71 kg

DRUGS (9)
  1. RAMIPRIL. [Concomitant]
     Active Substance: RAMIPRIL
     Dosage: 2.5 MG, BID
     Route: 048
  2. ELIQUIS [Suspect]
     Active Substance: APIXABAN
     Indication: CEREBROVASCULAR ACCIDENT PROPHYLAXIS
     Dosage: 2.5 MG, BID
     Route: 048
     Dates: end: 20160601
  3. LATANOPROST. [Suspect]
     Active Substance: LATANOPROST
     Dosage: (2 DROPS ON THE LEFT AND 1 DROP ON THE RIGHT
     Route: 065
  4. ALDACTONE [Concomitant]
     Active Substance: SPIRONOLACTONE
     Dosage: 25 MG, QD
     Route: 048
  5. HALDOL [Concomitant]
     Active Substance: HALOPERIDOL
     Dosage: UNK, TID
     Route: 065
  6. TOREM /01036501/ [Concomitant]
     Active Substance: TORSEMIDE
     Dosage: 7.5 MG, QD
     Route: 048
  7. METOHEXAL /00376902/ [Concomitant]
     Active Substance: METOPROLOL SUCCINATE
     Dosage: 25 MG, QD
     Route: 048
  8. TAMSULOSIN [Concomitant]
     Active Substance: TAMSULOSIN
     Dosage: 0.4 MG, QD
     Route: 048
  9. AMLODIPINE [Concomitant]
     Active Substance: AMLODIPINE BESYLATE
     Indication: HYPERTENSION
     Dosage: 5 MG, QD
     Route: 048
     Dates: start: 20060102, end: 20160501

REACTIONS (5)
  - Macroangiopathy [Recovering/Resolving]
  - Hallucination, visual [Recovered/Resolved]
  - Emphysema [Recovering/Resolving]
  - Cerebral atrophy [Recovering/Resolving]
  - Blood creatinine increased [Recovering/Resolving]

NARRATIVE: CASE EVENT DATE: 20160202
